FAERS Safety Report 11448506 (Version 1)
Quarter: 2015Q3

REPORT INFORMATION
  Report Type: Spontaneous
  Country: CN (occurrence: CN)
  Receive Date: 20150902
  Receipt Date: 20150902
  Transmission Date: 20151125
  Serious: Yes (Hospitalization)
  Sender: FDA-Public Use
  Company Number: CN-GLAXOSMITHKLINE-CN2015GSK124667

PATIENT
  Age: 63 Year
  Sex: Male

DRUGS (5)
  1. VENTOLIN HFA [Suspect]
     Active Substance: ALBUTEROL SULFATE
     Dosage: 2 SPRAYS, 4 OR 6 TIMES DAILY
  2. VENTOLIN HFA [Suspect]
     Active Substance: ALBUTEROL SULFATE
     Dosage: TWO SPRAYS, AT LEAST 20 TIMES
  3. VENTOLIN HFA [Suspect]
     Active Substance: ALBUTEROL SULFATE
     Indication: TRACHEITIS
     Dosage: 2 SPRAYS, NO MORE THAN 4 TIMES DAILY
     Route: 055
  4. VENTOLIN HFA [Suspect]
     Active Substance: ALBUTEROL SULFATE
     Dosage: TWO SPRAYS, MORE THAN 10 TIMES DAILY
  5. SERETIDE [Suspect]
     Active Substance: FLUTICASONE FUROATE\SALMETEROL XINAFOATE
     Indication: TRACHEITIS
     Dosage: SOMETIMES QD, SOMETIMES TWO PUFFS BEFORE SLEEPING
     Route: 055
     Dates: start: 2013

REACTIONS (7)
  - Off label use [Unknown]
  - Dyspnoea [Recovering/Resolving]
  - Pulmonary pain [Recovering/Resolving]
  - Drug ineffective [Unknown]
  - Chest pain [Recovering/Resolving]
  - Overdose [Unknown]
  - Drug administration error [Unknown]

NARRATIVE: CASE EVENT DATE: 201508
